FAERS Safety Report 23672989 (Version 1)
Quarter: 2024Q1

REPORT INFORMATION
  Report Type: Spontaneous
  Country: FR (occurrence: FR)
  Receive Date: 20240326
  Receipt Date: 20240326
  Transmission Date: 20240410
  Serious: Yes (Other)
  Sender: FDA-Public Use
  Company Number: FR-SUN PHARMACEUTICAL INDUSTRIES LTD-2024RR-438479

PATIENT
  Age: 78 Year
  Sex: Female

DRUGS (2)
  1. BOSENTAN [Suspect]
     Active Substance: BOSENTAN
     Indication: Hypertension
     Dosage: 125 MILLIGRAM, DAILY
     Route: 048
     Dates: start: 20231010
  2. BOSENTAN [Suspect]
     Active Substance: BOSENTAN
     Dosage: 250 MILLIGRAM, DAILY
     Route: 048
     Dates: start: 20231108

REACTIONS (2)
  - Eosinophilia [Recovered/Resolved]
  - Hepatitis [Recovered/Resolved]

NARRATIVE: CASE EVENT DATE: 20231122
